FAERS Safety Report 14937672 (Version 1)
Quarter: 2018Q2

REPORT INFORMATION
  Report Type: Report from Study
  Country: US (occurrence: US)
  Receive Date: 20180525
  Receipt Date: 20180525
  Transmission Date: 20180711
  Serious: Yes (Hospitalization, Other)
  Sender: FDA-Public Use
  Company Number: PHHO2018US006534

PATIENT
  Age: 78 Year
  Sex: Female

DRUGS (1)
  1. TRAMETINIB [Suspect]
     Active Substance: TRAMETINIB
     Indication: PLASMA CELL MYELOMA
     Dosage: 2 MG, QD
     Route: 048
     Dates: start: 20150210, end: 20150422

REACTIONS (8)
  - Blood creatinine increased [Recovered/Resolved]
  - Osteomyelitis [Recovered/Resolved]
  - Hypocalcaemia [Unknown]
  - Troponin T increased [Recovered/Resolved]
  - Myocardial infarction [Recovered/Resolved]
  - Acute kidney injury [Unknown]
  - Supraventricular tachycardia [Recovered/Resolved]
  - Anaemia [Unknown]

NARRATIVE: CASE EVENT DATE: 20150414
